FAERS Safety Report 21981768 (Version 2)
Quarter: 2023Q1

REPORT INFORMATION
  Report Type: Spontaneous
  Country: ZA (occurrence: ZA)
  Receive Date: 20230212
  Receipt Date: 20230331
  Transmission Date: 20230418
  Serious: Yes (Other)
  Sender: FDA-Public Use
  Company Number: ZA-002147023-NVSC2023ZA026195

PATIENT
  Age: 66 Year
  Sex: Female

DRUGS (1)
  1. ACLASTA [Suspect]
     Active Substance: ZOLEDRONIC ACID
     Indication: Osteoporosis
     Dosage: 1 DOSAGE FORM, Q12MO (ANUALLY)
     Route: 042
     Dates: start: 202203

REACTIONS (11)
  - Intervertebral disc protrusion [Not Recovered/Not Resolved]
  - Intervertebral disc degeneration [Unknown]
  - Spondylolisthesis [Unknown]
  - Hypercholesterolaemia [Unknown]
  - Osteopenia [Unknown]
  - High density lipoprotein increased [Unknown]
  - Spinal osteoarthritis [Unknown]
  - Osteoporosis [Unknown]
  - Chills [Unknown]
  - Hot flush [Unknown]
  - Bone pain [Unknown]

NARRATIVE: CASE EVENT DATE: 20230118
